FAERS Safety Report 9814273 (Version 1)
Quarter: 2014Q1

REPORT INFORMATION
  Report Type: Spontaneous
  Country: US (occurrence: US)
  Receive Date: 20140113
  Receipt Date: 20140113
  Transmission Date: 20141002
  Serious: Yes (Other)
  Sender: FDA-Public Use
  Company Number: US-UCBSA-107896

PATIENT
  Sex: Male

DRUGS (3)
  1. KEPPRA [Suspect]
     Dosage: UNKNOWN DOSE
  2. LAMICTAL [Suspect]
     Dosage: UNKNOWN DOSE
  3. DIVALPROEX SODIUM [Concomitant]
     Dosage: EXTENDED RELEASE TABLETS

REACTIONS (4)
  - Stevens-Johnson syndrome [Unknown]
  - Aura [Unknown]
  - Muscle twitching [Unknown]
  - Drug effect decreased [Unknown]
